FAERS Safety Report 4429598-4 (Version None)
Quarter: 2004Q3

REPORT INFORMATION
  Report Type: 
  Country: None (occurrence: None)
  Receive Date: 20040819
  Receipt Date: 20040816
  Transmission Date: 20050211
  Serious: Yes (Hospitalization, Other)
  Sender: FDA-Public Use
  Company Number: US-BRISTOL-MYERS SQUIBB COMPANY-12671673

PATIENT
  Age: 51 Year
  Sex: Male

DRUGS (7)
  1. SERZONE [Suspect]
     Indication: DEPRESSION
     Dosage: STARTED AT 150MG AM, 300MG PM;INCREASED TO 150MG AM 450MG PM 1 WEEK PRIOR TO HOSPITAL ADMISSION
     Route: 048
  2. CLONAZEPAM [Suspect]
  3. MIRTAZAPINE [Suspect]
     Dosage: REDUCED TO 15MG DAILY
  4. RANITIDINE [Suspect]
  5. OMEPRAZOLE [Suspect]
  6. QUETIAPINE [Suspect]
  7. HYDROCODONE + ACETAMINOPHEN [Concomitant]

REACTIONS (1)
  - HEPATIC FAILURE [None]
